FAERS Safety Report 6752749-3 (Version None)
Quarter: 2010Q2

REPORT INFORMATION
  Report Type: 
  Country: None (occurrence: None)
  Receive Date: 20100528
  Receipt Date: 20100526
  Transmission Date: 20101027
  Serious: Yes (Hospitalization, Other)
  Sender: FDA-Public Use
  Company Number: 012484

PATIENT
  Sex: Male
  Weight: 82.7 kg

DRUGS (8)
  1. CIMZIA [Suspect]
     Indication: CROHN'S DISEASE
     Dosage: 200 MG, NO. OF DOSES RECEIVED:  40 SUBCUTANEOUS
     Route: 058
     Dates: start: 20081210
  2. ASACOL [Concomitant]
  3. COLESTIPOL HYDROCHLORIDE [Concomitant]
  4. HYDROCHLOROTHIAZIDE [Concomitant]
  5. PACERONE [Concomitant]
  6. COUMADIN [Concomitant]
  7. COREG [Concomitant]
  8. AMITRIPTYLINE [Concomitant]

REACTIONS (6)
  - BLADDER DISORDER [None]
  - CALCINOSIS [None]
  - NAUSEA [None]
  - PAIN [None]
  - UROSEPSIS [None]
  - VOMITING [None]
